FAERS Safety Report 7966173-9 (Version None)
Quarter: 2011Q4

REPORT INFORMATION
  Report Type: 
  Country: None (occurrence: None)
  Receive Date: 20111208
  Receipt Date: 20111205
  Transmission Date: 20120403
  Serious: Yes (Other)
  Sender: FDA-Public Use
  Company Number: PL-ROXANE LABORATORIES, INC.-2011-RO-01736RO

PATIENT
  Age: 36 Year
  Sex: Male

DRUGS (3)
  1. CYCLOPHOSPHAMIDE [Suspect]
     Indication: GERM CELL CANCER METASTATIC
     Route: 042
     Dates: start: 20080901
  2. ETOPOSIDE [Suspect]
     Indication: GERM CELL CANCER METASTATIC
     Route: 042
     Dates: start: 20080901
  3. CARBOPLATIN [Suspect]
     Indication: GERM CELL CANCER METASTATIC
     Route: 042
     Dates: start: 20080901

REACTIONS (2)
  - ARRHYTHMIA SUPRAVENTRICULAR [None]
  - CARDIOTOXICITY [None]
